FAERS Safety Report 12018983 (Version 1)
Quarter: 2016Q1

REPORT INFORMATION
  Report Type: Report from Study
  Country: US (occurrence: US)
  Receive Date: 20160205
  Receipt Date: 20160205
  Transmission Date: 20160526
  Serious: No
  Sender: FDA-Public Use
  Company Number: US-ABBVIE-15K-163-1460489-00

PATIENT
  Sex: Female

DRUGS (1)
  1. HUMIRA [Suspect]
     Active Substance: ADALIMUMAB
     Indication: RHEUMATOID ARTHRITIS
     Route: 065
     Dates: start: 20150821

REACTIONS (7)
  - Upper respiratory tract infection [Not Recovered/Not Resolved]
  - Drug effect decreased [Not Recovered/Not Resolved]
  - Sputum discoloured [Unknown]
  - Respiratory tract congestion [Recovered/Resolved]
  - Paranasal sinus hypersecretion [Recovered/Resolved]
  - Productive cough [Unknown]
  - Headache [Unknown]

NARRATIVE: CASE EVENT DATE: 2015
